FAERS Safety Report 15654059 (Version 1)
Quarter: 2018Q4

REPORT INFORMATION
  Report Type: Spontaneous
  Country: US (occurrence: US)
  Receive Date: 20181125
  Receipt Date: 20181125
  Transmission Date: 20190205
  Serious: Yes (Disabling, Other)
  Sender: FDA-Public Use
  Company Number: None

PATIENT
  Age: 32 Year
  Sex: Female
  Weight: 62.14 kg

DRUGS (5)
  1. MIGRELIEF [Concomitant]
  2. CLARISPRAY [Concomitant]
  3. MULTIVITAMIN [Concomitant]
     Active Substance: VITAMINS
  4. MIRENA [Suspect]
     Active Substance: LEVONORGESTREL
  5. FAMOTIDINE. [Concomitant]
     Active Substance: FAMOTIDINE

REACTIONS (12)
  - Hepatic steatosis [None]
  - Cerebrovascular accident [None]
  - Visual impairment [None]
  - Hair texture abnormal [None]
  - Food intolerance [None]
  - Anger [None]
  - Vertigo [None]
  - Alopecia [None]
  - Ovarian cyst [None]
  - Migraine [None]
  - Fatigue [None]
  - Depression [None]
